FAERS Safety Report 10158396 (Version 3)
Quarter: 2014Q2

REPORT INFORMATION
  Report Type: Report from Study
  Country: DE (occurrence: DE)
  Receive Date: 20140507
  Receipt Date: 20140513
  Transmission Date: 20141212
  Serious: Yes (Hospitalization)
  Sender: FDA-Public Use
  Company Number: PHHY2013DE097818

PATIENT
  Age: 77 Year
  Sex: Female
  Weight: 67 kg

DRUGS (12)
  1. AFINITOR [Suspect]
     Indication: BREAST CANCER METASTATIC
     Dosage: 10 MG, QD
     Dates: start: 20130516, end: 20130729
  2. AFINITOR [Suspect]
     Dosage: 10 MG, QD
     Dates: start: 20130809, end: 20130821
  3. AFINITOR [Suspect]
     Dosage: 5 MG, QD
     Dates: start: 20130822, end: 20130826
  4. ESIDRIX [Concomitant]
     Dosage: 25 MG, QD
  5. EXEMESTANE [Concomitant]
     Indication: BREAST CANCER METASTATIC
     Dosage: 25 MG, QD
     Route: 048
     Dates: start: 20130606, end: 20130826
  6. BISPHOSPHONATES [Concomitant]
     Dosage: UNK UKN, UNK
  7. L-THYROXIN [Concomitant]
     Dosage: 125 UG, QD
  8. AMLODIPINE [Concomitant]
     Dosage: 5 MG, QD
  9. NEBILET [Concomitant]
     Dosage: 5 MG, QD
  10. PANTOZOL [Concomitant]
     Dosage: 40 MG, QD
     Dates: start: 201308
  11. FERRO-SANOL DUODENAL [Concomitant]
     Dosage: 100 MG, QD
     Dates: start: 201308
  12. NOVAMIN//METAMIZOLE SODIUM [Concomitant]
     Dosage: 500 MG, QID
     Dates: start: 201308

REACTIONS (5)
  - Urinary tract infection [Recovered/Resolved]
  - Pyrexia [Recovered/Resolved]
  - Chills [Recovered/Resolved]
  - Nausea [Recovered/Resolved]
  - Vomiting [Recovered/Resolved]
